FAERS Safety Report 5278548-X (Version None)
Quarter: 2007Q1

REPORT INFORMATION
  Report Type: 
  Country: None (occurrence: None)
  Receive Date: 20061213
  Receipt Date: 20050520
  Transmission Date: 20070707
  Serious: Yes (Hospitalization)
  Sender: FDA-Public Use
  Company Number: 2005UW07847

PATIENT
  Age: 59 Year
  Sex: Male

DRUGS (3)
  1. SEROQUEL [Suspect]
     Dosage: TITRATION PACK
     Dates: start: 20050412
  2. PRINIVIL [Concomitant]
  3. PREVACID [Concomitant]

REACTIONS (2)
  - CHEST PAIN [None]
  - HYPOTENSION [None]
